FAERS Safety Report 10247931 (Version 1)
Quarter: 2014Q2

REPORT INFORMATION
  Report Type: Report from Study
  Country: ES (occurrence: ES)
  Receive Date: 20140619
  Receipt Date: 20140619
  Transmission Date: 20141212
  Serious: Yes (Other)
  Sender: FDA-Public Use
  Company Number: ES-BAXTER-2014BAX032849

PATIENT
  Age: 22 Year
  Sex: Male

DRUGS (1)
  1. KIOVIG 100 MG/ML SOLUCI?N PARA PERFUSI?N 10G/100ML [Suspect]
     Indication: CHRONIC INFLAMMATORY DEMYELINATING POLYRADICULONEUROPATHY
     Route: 042

REACTIONS (2)
  - Drug ineffective [Unknown]
  - Off label use [None]
